FAERS Safety Report 9220764 (Version 2)
Quarter: 2013Q2

REPORT INFORMATION
  Report Type: Spontaneous
  Country: FR (occurrence: FR)
  Receive Date: 20130409
  Receipt Date: 20130502
  Transmission Date: 20140414
  Serious: Yes (Life-Threatening, Hospitalization, Other)
  Sender: FDA-Public Use
  Company Number: FR-PFIZER INC-2013106447

PATIENT
  Age: 6 Year
  Sex: Male
  Weight: 19.5 kg

DRUGS (3)
  1. ARACYTINE [Suspect]
     Indication: B-CELL TYPE ACUTE LEUKAEMIA
     Dosage: 2.5 MG, CYCLIC
     Route: 037
     Dates: start: 20120227
  2. LEDERTREXATE /00113801/ [Suspect]
     Indication: B-CELL TYPE ACUTE LEUKAEMIA
     Dosage: 12 MG, CYCLIC
     Route: 037
     Dates: start: 20120227
  3. HYDROCORTISONE ^UPJOHN^ [Suspect]
     Indication: B-CELL TYPE ACUTE LEUKAEMIA
     Dosage: 12 MG, CYCLIC
     Route: 037
     Dates: start: 20120227

REACTIONS (4)
  - Status epilepticus [Recovered/Resolved]
  - Encephalopathy [Unknown]
  - Polymyositis [Unknown]
  - Bone marrow disorder [Unknown]
